FAERS Safety Report 14490948 (Version 3)
Quarter: 2018Q1

REPORT INFORMATION
  Report Type: Spontaneous
  Country: US (occurrence: US)
  Receive Date: 20180206
  Receipt Date: 20180213
  Transmission Date: 20180509
  Serious: No
  Sender: FDA-Public Use
  Company Number: US-PFIZER INC-2018047485

PATIENT
  Age: 75 Year
  Sex: Male
  Weight: 65.31 kg

DRUGS (2)
  1. LYRICA [Suspect]
     Active Substance: PREGABALIN
     Indication: POLYNEUROPATHY
     Dosage: 225 MG, DAILY (75 MG IN THE MORNING /150 MG IN THE EVENING )
     Route: 048
     Dates: start: 20180118
  2. LYRICA [Suspect]
     Active Substance: PREGABALIN
     Indication: NEUROPATHY PERIPHERAL
     Dosage: 75 MG, DAILY

REACTIONS (1)
  - Drug ineffective [Not Recovered/Not Resolved]
